FAERS Safety Report 17208170 (Version 1)
Quarter: 2019Q4

REPORT INFORMATION
  Report Type: Spontaneous
  Country: US (occurrence: US)
  Receive Date: 20191227
  Receipt Date: 20191227
  Transmission Date: 20200122
  Serious: No
  Sender: FDA-Public Use
  Company Number: US-UCBSA-2018024272

PATIENT
  Age: 31 Year
  Sex: Male

DRUGS (7)
  1. BRIVARACETAM [Suspect]
     Active Substance: BRIVARACETAM
     Indication: MYOCLONUS
     Dosage: 50 MG, 2X/DAY (BID)
  2. DEPAKOTE [Concomitant]
     Active Substance: DIVALPROEX SODIUM
     Indication: MYOCLONUS
     Dosage: UNKNOWN DOSE
  3. BRIVARACETAM [Suspect]
     Active Substance: BRIVARACETAM
     Indication: OFF LABEL USE
     Dosage: DOSE TITRATED
  4. TRYPTOPHAN [Concomitant]
     Active Substance: TRYPTOPHAN
     Indication: MYOCLONUS
     Dosage: UNKNOWN DOSE
  5. KLONOPIN [Suspect]
     Active Substance: CLONAZEPAM
     Indication: MYOCLONUS
     Dosage: HIGHER DOSES AT UNKNOWN DOSE
  6. ZONISAMIDE. [Concomitant]
     Active Substance: ZONISAMIDE
     Indication: MYOCLONUS
     Dosage: UNKNOWN DOSE
  7. KEPPRA [Concomitant]
     Active Substance: LEVETIRACETAM
     Indication: MYOCLONUS
     Dosage: UNKNOWN DOSE

REACTIONS (2)
  - Somnolence [Recovered/Resolved]
  - Off label use [Unknown]
